FAERS Safety Report 4348352-5 (Version None)
Quarter: 2004Q2

REPORT INFORMATION
  Report Type: 
  Country: None (occurrence: None)
  Receive Date: 20040422
  Receipt Date: 20040414
  Transmission Date: 20050107
  Serious: Yes (Hospitalization, Other)
  Sender: FDA-Public Use
  Company Number: 2004-04-0005

PATIENT
  Age: 24 Year
  Sex: Male
  Weight: 67 kg

DRUGS (4)
  1. PEG-INTRON [Suspect]
     Indication: HEPATITIS B
     Dosage: QWK SUBCUTANEOUS
     Route: 058
     Dates: start: 20030701
  2. PEG-INTRON [Suspect]
     Indication: HEPATITIS C
     Dosage: QWK SUBCUTANEOUS
     Route: 058
     Dates: start: 20030701
  3. REBETOL [Suspect]
     Indication: HEPATITIS B
     Dosage: 200 MG QD ORAL
     Route: 048
     Dates: start: 20030701
  4. REBETOL [Suspect]
     Indication: HEPATITIS C
     Dosage: 200 MG QD ORAL
     Route: 048
     Dates: start: 20030701

REACTIONS (3)
  - ALVEOLITIS ALLERGIC [None]
  - ASPERGILLOSIS [None]
  - RESTRICTIVE PULMONARY DISEASE [None]
